FAERS Safety Report 5475997-1 (Version None)
Quarter: 2007Q4

REPORT INFORMATION
  Report Type: 
  Country: None (occurrence: None)
  Receive Date: 20071003
  Receipt Date: 20070921
  Transmission Date: 20080405
  Serious: Yes (Death, Other)
  Sender: FDA-Public Use
  Company Number: CH-ROCHE-521189

PATIENT
  Age: 75 Year
  Sex: Male

DRUGS (8)
  1. RIVOTRIL [Suspect]
     Indication: DRUG USE FOR UNKNOWN INDICATION
     Dosage: TAKEN ONCE
     Route: 048
     Dates: start: 20070729, end: 20070729
  2. KEPPRA [Suspect]
     Indication: DRUG USE FOR UNKNOWN INDICATION
     Dosage: TAKEN ONCE
     Route: 048
     Dates: start: 20070729, end: 20070729
  3. NEXIUM [Concomitant]
     Indication: PROPHYLAXIS
     Route: 048
     Dates: end: 20070731
  4. HALOPERIDOL [Concomitant]
     Indication: RESTLESSNESS
     Route: 048
     Dates: end: 20070731
  5. FUROSEMIDE [Concomitant]
     Dosage: TAKEN ONCE
     Route: 042
     Dates: start: 20070731, end: 20070731
  6. DILTIAZEM [Concomitant]
     Indication: ESSENTIAL HYPERTENSION
     Route: 048
     Dates: end: 20070731
  7. PARACETAMOL [Concomitant]
     Indication: PAIN
     Route: 048
  8. LAXOBERON [Concomitant]
     Indication: CONSTIPATION
     Route: 048
     Dates: end: 20070731

REACTIONS (6)
  - DEATH [None]
  - DRUG ADMINISTRATION ERROR [None]
  - DYSARTHRIA [None]
  - PNEUMONITIS [None]
  - RESPIRATORY DEPRESSION [None]
  - SEPSIS [None]
